FAERS Safety Report 17264710 (Version 2)
Quarter: 2020Q1

REPORT INFORMATION
  Report Type: Spontaneous
  Country: US (occurrence: US)
  Receive Date: 20200113
  Receipt Date: 20200121
  Transmission Date: 20200409
  Serious: No
  Sender: FDA-Public Use
  Company Number: US-PFIZER INC-2020012166

PATIENT
  Sex: Female

DRUGS (1)
  1. BOSULIF [Suspect]
     Active Substance: BOSUTINIB MONOHYDRATE
     Indication: CHRONIC MYELOID LEUKAEMIA
     Dosage: UNK

REACTIONS (5)
  - Peripheral swelling [Unknown]
  - Pain [Unknown]
  - Asthenia [Unknown]
  - Pain in extremity [Unknown]
  - Hypoaesthesia [Unknown]
